FAERS Safety Report 20210017 (Version 1)
Quarter: 2021Q4

REPORT INFORMATION
  Report Type: Spontaneous
  Country: ES (occurrence: ES)
  Receive Date: 20211221
  Receipt Date: 20211221
  Transmission Date: 20220303
  Serious: Yes (Other)
  Sender: FDA-Public Use
  Company Number: None

PATIENT
  Age: 48 Year
  Sex: Female

DRUGS (2)
  1. IBUPROFEN [Suspect]
     Active Substance: IBUPROFEN
     Dosage: IBUPROFEN (1769A)
     Route: 048
     Dates: start: 20211128, end: 20211128
  2. SYMBICORT [Concomitant]
     Active Substance: BUDESONIDE\FORMOTEROL FUMARATE DIHYDRATE
     Dosage: 2 DF, SYMBICORT TURBUHALER 160 MICROGRAMS / 4.5 MICROGRAMS / INHALATION POWDER FOR INHALATION, 1 INH
     Route: 055
     Dates: start: 20150223

REACTIONS (4)
  - Urticaria [Recovered/Resolved]
  - Rash papular [Recovered/Resolved]
  - Throat irritation [Recovered/Resolved]
  - Pruritus [Recovered/Resolved]

NARRATIVE: CASE EVENT DATE: 20211128
